FAERS Safety Report 5196969-0 (Version None)
Quarter: 2006Q4

REPORT INFORMATION
  Report Type: 
  Country: None (occurrence: None)
  Receive Date: 20061227
  Receipt Date: 20061212
  Transmission Date: 20070319
  Serious: Yes (Hospitalization)
  Sender: FDA-Public Use
  Company Number: 2006154868

PATIENT
  Sex: Male

DRUGS (2)
  1. ATARAX [Suspect]
     Dosage: 3 DOSAGE FORMS (1 D), PLACENTAL
     Route: 064
  2. IMOVANE (ZOPICLONE) [Suspect]
     Dosage: 1 DOSAGE FORM (1 D), PLACENTAL
     Route: 064

REACTIONS (8)
  - CAESAREAN SECTION [None]
  - DRUG EXPOSURE DURING PREGNANCY [None]
  - HYPOTONIA NEONATAL [None]
  - NEONATAL DISORDER [None]
  - POLYURIA [None]
  - POOR SUCKING REFLEX [None]
  - TACHYCARDIA FOETAL [None]
  - WEIGHT DECREASE NEONATAL [None]
